FAERS Safety Report 7539363-7 (Version None)
Quarter: 2011Q2

REPORT INFORMATION
  Report Type: 
  Country: None (occurrence: None)
  Receive Date: 20110610
  Receipt Date: 20110216
  Transmission Date: 20111010
  Serious: Yes (Hospitalization, Other)
  Sender: FDA-Public Use
  Company Number: JP-BAYER-2011-015582

PATIENT
  Age: 70 Year
  Sex: Female
  Weight: 48 kg

DRUGS (7)
  1. SORAFENIB (RAF KINASE INHIBITOR) [Suspect]
     Indication: RENAL CELL CARCINOMA
     Dosage: DAILY DOSE 800 MG
     Route: 048
     Dates: start: 20080802, end: 20081022
  2. TAGAMET [Concomitant]
     Dosage: DAILY DOSE 800 MG
     Route: 048
     Dates: start: 20081009, end: 20090205
  3. SORAFENIB (RAF KINASE INHIBITOR) [Suspect]
     Dosage: DAILY DOSE 400 MG
     Dates: start: 20081127, end: 20081214
  4. SORAFENIB (RAF KINASE INHIBITOR) [Suspect]
     Dosage: DAILY DOSE 400 MG
     Dates: start: 20081217, end: 20090204
  5. CORTRIL [Concomitant]
     Dosage: DAILY DOSE 10.5 MG
     Route: 048
     Dates: start: 20081002, end: 20090205
  6. SORAFENIB (RAF KINASE INHIBITOR) [Suspect]
     Dosage: DAILY DOSE 400 MG
     Dates: start: 20081106, end: 20081116
  7. FASTIC [Concomitant]
     Dosage: DAILY DOSE 270 MG
     Route: 048
     Dates: start: 20081002, end: 20090205

REACTIONS (13)
  - PRURITUS [None]
  - OEDEMA PERIPHERAL [None]
  - GASTRIC ULCER [None]
  - OEDEMA [None]
  - STOMATITIS [None]
  - PLATELET COUNT DECREASED [None]
  - CONSTIPATION [None]
  - RASH [None]
  - MALAISE [None]
  - ASPARTATE AMINOTRANSFERASE INCREASED [None]
  - HYPOKALAEMIA [None]
  - DECREASED APPETITE [None]
  - BLOOD CREATININE INCREASED [None]
